FAERS Safety Report 18314082 (Version 1)
Quarter: 2020Q3

REPORT INFORMATION
  Report Type: Spontaneous
  Country: DE (occurrence: DE)
  Receive Date: 20200925
  Receipt Date: 20200925
  Transmission Date: 20201103
  Serious: Yes (Other)
  Sender: FDA-Public Use
  Company Number: DE-SA-2020SA258548

PATIENT

DRUGS (1)
  1. LANTUS [Suspect]
     Active Substance: INSULIN GLARGINE
     Dosage: 1 INJECTION DAILY
     Route: 065
     Dates: start: 202001

REACTIONS (1)
  - Phimosis [Not Recovered/Not Resolved]

NARRATIVE: CASE EVENT DATE: 202007
